FAERS Safety Report 5407012-X (Version None)
Quarter: 2007Q3

REPORT INFORMATION
  Report Type: 
  Country: None (occurrence: None)
  Receive Date: 20070803
  Receipt Date: 20070803
  Transmission Date: 20080115
  Serious: Yes (Hospitalization)
  Sender: FDA-Public Use
  Company Number: None

PATIENT
  Age: 72 Year
  Sex: Male

DRUGS (2)
  1. SPIRONOLACTONE [Suspect]
     Indication: HYPERTENSION
     Dosage: 100MG EVERY DAY PO
     Route: 048
     Dates: start: 20050120
  2. VALSARTAN [Suspect]
     Dosage: 80MG EVERY DAY PO
     Route: 048
     Dates: start: 20050120

REACTIONS (1)
  - HYPERKALAEMIA [None]
